FAERS Safety Report 6465726-7 (Version None)
Quarter: 2009Q4

REPORT INFORMATION
  Report Type: 
  Country: None (occurrence: None)
  Receive Date: 20091201
  Receipt Date: 20091123
  Transmission Date: 20100525
  Serious: Yes (Death)
  Sender: FDA-Public Use
  Company Number: FR-AMGEN-US312901

PATIENT
  Sex: Female

DRUGS (2)
  1. ENBREL [Suspect]
     Indication: ANKYLOSING SPONDYLITIS
     Route: 058
     Dates: start: 20080801, end: 20090301
  2. METHOTREXATE [Concomitant]
     Dosage: UNKNOWN

REACTIONS (4)
  - BREAST CANCER [None]
  - LEUKOPENIA [None]
  - NEUTROPENIA [None]
  - PULMONARY EMBOLISM [None]
